FAERS Safety Report 5252368-4 (Version None)
Quarter: 2007Q1

REPORT INFORMATION
  Report Type: 
  Country: None (occurrence: None)
  Receive Date: 20070227
  Receipt Date: 20070215
  Transmission Date: 20070707
  Serious: Yes (Other)
  Sender: FDA-Public Use
  Company Number: 100#03#2007-00549

PATIENT
  Age: 41 Year
  Sex: Female

DRUGS (2)
  1. CITALOPRAM HYDROBROMIDE [Suspect]
     Indication: DEPRESSION
     Dosage: 20 MG ORAL
     Route: 048
     Dates: start: 20070127, end: 20070129
  2. ZOPICLONE (ZOPICLONE) (ZOPICLONE) [Concomitant]

REACTIONS (2)
  - RASH [None]
  - SKIN ULCER [None]
